FAERS Safety Report 6976773-0 (Version None)
Quarter: 2010Q3

REPORT INFORMATION
  Report Type: 
  Country: None (occurrence: None)
  Receive Date: 20100910
  Receipt Date: 20100901
  Transmission Date: 20110219
  Serious: Yes (Other)
  Sender: FDA-Public Use
  Company Number: US-JNJFOC-20100901861

PATIENT
  Sex: Male

DRUGS (2)
  1. INVEGA SUSTENNA [Suspect]
     Indication: PSYCHOTIC DISORDER
     Route: 030
  2. UNKNOWN MULTIPLE MEDICATION [Concomitant]

REACTIONS (2)
  - PULMONARY THROMBOSIS [None]
  - THROMBOSIS [None]
